FAERS Safety Report 5277186-2 (Version None)
Quarter: 2007Q1

REPORT INFORMATION
  Report Type: 
  Country: None (occurrence: None)
  Receive Date: 20070327
  Receipt Date: 20070320
  Transmission Date: 20070707
  Serious: Yes (Hospitalization)
  Sender: FDA-Public Use
  Company Number: 2007AC00484

PATIENT
  Age: 23 Year
  Sex: Male

DRUGS (6)
  1. OMEPRAZOLE [Suspect]
     Indication: GASTROOESOPHAGEAL REFLUX DISEASE
  2. OMEPRAZOLE [Suspect]
     Indication: HELICOBACTER INFECTION
  3. CLARITHROMYCIN [Suspect]
     Indication: GASTROOESOPHAGEAL REFLUX DISEASE
  4. CLARITHROMYCIN [Suspect]
     Indication: HELICOBACTER INFECTION
  5. METRONIDAZOLE [Suspect]
     Indication: GASTROOESOPHAGEAL REFLUX DISEASE
  6. METRONIDAZOLE [Suspect]
     Indication: HELICOBACTER INFECTION

REACTIONS (1)
  - PNEUMOMEDIASTINUM [None]
